FAERS Safety Report 24240005 (Version 1)
Quarter: 2024Q3

REPORT INFORMATION
  Report Type: Report from Study
  Country: US (occurrence: US)
  Receive Date: 20240822
  Receipt Date: 20240822
  Transmission Date: 20241017
  Serious: Yes (Other)
  Sender: BAUSCH AND LOMB
  Company Number: US-BAUSCH-BL-2024-002915

PATIENT
  Age: 75 Year
  Sex: Male

DRUGS (2)
  1. TARGRETIN [Suspect]
     Active Substance: BEXAROTENE
     Indication: Product used for unknown indication
     Route: 065
  2. TARGRETIN [Suspect]
     Active Substance: BEXAROTENE
     Route: 065

REACTIONS (2)
  - Retinal detachment [Unknown]
  - Therapy interrupted [Unknown]
